FAERS Safety Report 10538349 (Version 1)
Quarter: 2014Q4

REPORT INFORMATION
  Report Type: Spontaneous
  Country: US (occurrence: US)
  Receive Date: 20141023
  Receipt Date: 20141023
  Transmission Date: 20150529
  Serious: No
  Sender: FDA-Public Use
  Company Number: US-B.I. PHARMACEUTICALS,INC./RIDGEFIELD-2014-BI-49228BP

PATIENT
  Age: 68 Year
  Sex: Female
  Weight: 104.32 kg

DRUGS (26)
  1. PRADAXA [Suspect]
     Active Substance: DABIGATRAN ETEXILATE MESYLATE
     Indication: ATRIAL FIBRILLATION
     Dosage: 300 MG
     Route: 048
     Dates: start: 2010, end: 20141010
  2. DIOVAN [Concomitant]
     Active Substance: VALSARTAN
     Indication: HYPERTENSION
     Dosage: 160 MG
     Route: 048
     Dates: start: 2007
  3. MAGNESIUM CITRATE. [Concomitant]
     Active Substance: MAGNESIUM CITRATE
     Indication: TYPE 2 DIABETES MELLITUS
     Route: 048
  4. CINAIMON [Concomitant]
     Indication: DYSPEPSIA
  5. BIOTEN [Concomitant]
     Indication: NAIL DISORDER
  6. ARTICHOKE EXTRACT [Concomitant]
     Indication: BLOOD CHOLESTEROL INCREASED
     Dosage: 450 MG
     Route: 048
     Dates: start: 2012
  7. CYCLOBENZAPRINE [Concomitant]
     Active Substance: CYCLOBENZAPRINE
     Indication: BACK PAIN
     Route: 048
     Dates: start: 2009
  8. CALCIUM WITH VITAMIN D [Concomitant]
     Active Substance: CALCIUM\VITAMIN D
     Indication: PRODUCT USED FOR UNKNOWN INDICATION
     Route: 048
     Dates: start: 2011
  9. CORTISPORIN [Concomitant]
     Active Substance: BACITRACIN ZINC\HYDROCORTISONE\NEOMYCIN SULFATE\POLYMYXIN B SULFATE
     Indication: URTICARIA
     Dosage: STRENGTH: 0.5%
     Route: 061
     Dates: start: 1970
  10. LORATIDINE [Concomitant]
     Active Substance: LORATADINE
     Indication: HYPERSENSITIVITY
     Dosage: 10 MG
     Route: 048
     Dates: start: 1999
  11. CINAIMON [Concomitant]
     Indication: TYPE 2 DIABETES MELLITUS
     Dosage: 1500 MG
     Route: 048
     Dates: start: 2011
  12. ASTAXANTHIN [Concomitant]
     Indication: IMMUNE SYSTEM DISORDER
     Dosage: 4 MG
     Route: 048
     Dates: start: 2013
  13. MULTAQ [Concomitant]
     Active Substance: DRONEDARONE
     Indication: CARDIAC DISORDER
     Dosage: 800 MG
     Route: 048
     Dates: start: 2010
  14. METHYL- B12 [Concomitant]
     Indication: DIABETIC NEUROPATHY
     Dosage: 1000 MCG
     Route: 048
     Dates: start: 2014
  15. GINGER. [Concomitant]
     Active Substance: GINGER
     Indication: TYPE 2 DIABETES MELLITUS
     Dosage: 750 MG
     Route: 048
     Dates: start: 2011
  16. BIOTEN [Concomitant]
     Indication: HAIR DISORDER
     Dosage: 1000 MCG
     Route: 048
     Dates: start: 2011
  17. MILK THISTLE [Concomitant]
     Active Substance: MILK THISTLE
     Indication: PROPHYLAXIS
     Dosage: 150 MG
     Route: 048
     Dates: start: 2002
  18. HAWTHORNE EXTRACT [Concomitant]
     Indication: TYPE 2 DIABETES MELLITUS
     Dosage: 300 MG
     Route: 048
     Dates: start: 2013
  19. ACETYL-L CARNITINE [Concomitant]
     Indication: DIABETIC NEUROPATHY
     Dosage: 500 MG
     Route: 048
     Dates: start: 2014
  20. CHONDROITIN SULFATE (BOVINE)\GLUCOSAMINE SULFATE [Concomitant]
     Active Substance: CHONDROITIN SULFATE (BOVINE)\GLUCOSAMINE SULFATE
     Indication: OSTEOARTHRITIS
     Dosage: 3 ANZ
     Route: 048
     Dates: start: 2011
  21. VITAMIN B 1 [Concomitant]
     Indication: DIABETIC NEUROPATHY
     Dosage: 100 MG
     Route: 048
     Dates: start: 2014
  22. ASTRAGALUS ROOT EXTRACT [Concomitant]
     Indication: IMMUNE SYSTEM DISORDER
     Dosage: 400 MG
     Route: 048
     Dates: start: 2009
  23. METFORMIN [Concomitant]
     Active Substance: METFORMIN HYDROCHLORIDE
     Indication: TYPE 2 DIABETES MELLITUS
     Dosage: 1000 MG
     Route: 048
     Dates: start: 201409
  24. MULTIVITAMIN [Concomitant]
     Active Substance: VITAMINS
     Indication: VITAMIN SUPPLEMENTATION
     Dosage: 1 ANZ
     Route: 048
  25. UBIQUINOL [Concomitant]
     Indication: SUPPLEMENTATION THERAPY
     Dosage: 100 MG
     Route: 048
  26. KRILL OIL [Concomitant]
     Active Substance: DIETARY SUPPLEMENT
     Indication: ROUTINE HEALTH MAINTENANCE
     Dosage: 1000 MG
     Route: 048
     Dates: start: 2011

REACTIONS (8)
  - Fall [Recovered/Resolved]
  - Ocular hyperaemia [Not Recovered/Not Resolved]
  - Gait disturbance [Recovered/Resolved]
  - Ocular hyperaemia [Not Recovered/Not Resolved]
  - Swelling face [Not Recovered/Not Resolved]
  - Eye swelling [Not Recovered/Not Resolved]
  - Contusion [Not Recovered/Not Resolved]
  - Contusion [Not Recovered/Not Resolved]

NARRATIVE: CASE EVENT DATE: 201408
